FAERS Safety Report 10381873 (Version 1)
Quarter: 2014Q3

REPORT INFORMATION
  Report Type: Spontaneous
  Country: GB (occurrence: GB)
  Receive Date: 20140813
  Receipt Date: 20140813
  Transmission Date: 20150326
  Serious: Yes (Other)
  Sender: FDA-Public Use
  Company Number: GB-TEVA-500134ISR

PATIENT
  Age: 62 Year
  Sex: Female
  Weight: 72 kg

DRUGS (8)
  1. GLUCOSAMINE [Concomitant]
     Active Substance: GLUCOSAMINE
  2. MSM [Concomitant]
  3. CALCIUM AND VITAMIN D [Concomitant]
     Active Substance: CALCIUM\VITAMIN D
  4. LETROZOLE. [Suspect]
     Active Substance: LETROZOLE
     Indication: BREAST CANCER
     Route: 048
  5. L-THYROXINE [Concomitant]
     Active Substance: LEVOTHYROXINE
     Indication: HYPOTHYROIDISM
  6. ALLOPURINOL. [Concomitant]
     Active Substance: ALLOPURINOL
  7. MULTIVITAMIN [Concomitant]
     Active Substance: VITAMINS
  8. TAMOXIFEN [Interacting]
     Active Substance: TAMOXIFEN
     Indication: BREAST CANCER
     Dosage: 20 MILLIGRAM DAILY;
     Route: 048
     Dates: start: 201008

REACTIONS (10)
  - Disturbance in attention [Not Recovered/Not Resolved]
  - Arthritis [Not Recovered/Not Resolved]
  - Hot flush [Not Recovered/Not Resolved]
  - Loss of consciousness [Recovered/Resolved]
  - Cardiovascular disorder [Not Recovered/Not Resolved]
  - Depression [Not Recovered/Not Resolved]
  - Depressed mood [Unknown]
  - Muscle atrophy [Not Recovered/Not Resolved]
  - Gastroenteritis [Not Recovered/Not Resolved]
  - Alcohol interaction [Unknown]

NARRATIVE: CASE EVENT DATE: 201008
